FAERS Safety Report 8997875 (Version 1)
Quarter: 2013Q1

REPORT INFORMATION
  Report Type: Spontaneous
  Country: FR (occurrence: FR)
  Receive Date: 20130104
  Receipt Date: 20130104
  Transmission Date: 20140127
  Serious: Yes (Other)
  Sender: FDA-Public Use
  Company Number: FR-ROCHE-1174616

PATIENT
  Age: 61 Year
  Sex: Female

DRUGS (7)
  1. ZELBORAF [Suspect]
     Indication: MALIGNANT MELANOMA
     Route: 048
     Dates: start: 20120622, end: 20121102
  2. PLAVIX [Concomitant]
     Route: 065
  3. OLMETEC [Concomitant]
     Route: 065
  4. GABAPENTIN [Concomitant]
     Route: 065
  5. SERESTA [Concomitant]
     Route: 065
  6. TAHOR [Concomitant]
     Route: 065
  7. LEVOTHYROX [Concomitant]
     Indication: HYPOTHYROIDISM
     Route: 065

REACTIONS (1)
  - Pericardial effusion [Unknown]
